FAERS Safety Report 10673216 (Version 3)
Quarter: 2015Q1

REPORT INFORMATION
  Report Type: Spontaneous
  Country: JP (occurrence: JP)
  Receive Date: 20141224
  Receipt Date: 20150316
  Transmission Date: 20150720
  Serious: Yes (Life-Threatening, Hospitalization, Other)
  Sender: FDA-Public Use
  Company Number: JP-009507513-1412JPN010645

PATIENT
  Age: 81 Year
  Sex: Male
  Weight: 56 kg

DRUGS (10)
  1. AVOLVE [Concomitant]
     Active Substance: DUTASTERIDE
     Indication: BENIGN PROSTATIC HYPERPLASIA
     Dosage: DAILY DOSE: 0.5 MG, DIVIDED DOSE FREQUENCY UNKNOWN
     Route: 048
  2. DOPS OD [Concomitant]
     Active Substance: DROXIDOPA
     Indication: PARKINSON^S DISEASE
     Dosage: 2 TABLETS IN THE MORNING, 2 TABLETS IN THE NOON AND 2 TABLETS IN THE EVENING, STARTED FROM 300MG/DAY
     Route: 048
     Dates: start: 201404, end: 201412
  3. WYPAX [Concomitant]
     Active Substance: LORAZEPAM
     Indication: ANXIETY
     Dosage: 10 MG, DIVIDED DOSE FREQUENCY UNKNOWN
     Route: 048
     Dates: end: 201412
  4. MIRAPEX-LA [Concomitant]
     Indication: PARKINSON^S DISEASE
     Dosage: IN THE MORNING, STARTED FROM 0.37 5MG/ DAY AND THE DOSE WAS INCREASED AND DECREASED
     Route: 048
     Dates: start: 201309, end: 201412
  5. EC DOPARL [Concomitant]
     Active Substance: BENSERAZIDE HYDROCHLORIDE\LEVODOPA
     Indication: PARKINSON^S DISEASE
     Dosage: 1 TABLET IN THE MORNING, 1 TABLET IN THE NOON, 1 TABLET IN THE EVENING, 2 TABLETS BEFORE SLEEP
     Route: 048
     Dates: start: 201207, end: 201412
  6. OMEPRAL [Concomitant]
     Active Substance: OMEPRAZOLE
     Indication: PEPTIC ULCER
     Dosage: 10 MG, DIVIDED DOSE FREQUENCY UNKNOWN
     Route: 048
     Dates: end: 201412
  7. MAGLAX (MAGNESIUM OXIDE) [Concomitant]
     Active Substance: MAGNESIUM OXIDE
     Indication: ANTACID THERAPY
     Dosage: 330 MG, DIVIDED DOSE FREQUENCY UNKNOWN
     Route: 048
     Dates: end: 201412
  8. CEFDINIR. [Concomitant]
     Active Substance: CEFDINIR
     Indication: ANTIBIOTIC THERAPY
     Dosage: DAILY DOSAGE UNKNOWN
     Route: 048
     Dates: end: 201412
  9. BELSOMRA [Suspect]
     Active Substance: SUVOREXANT
     Indication: INSOMNIA
     Dosage: 15 MG, ONCE A DAY
     Route: 048
     Dates: start: 20141127, end: 20141202
  10. SENNOSIDES. [Concomitant]
     Active Substance: SENNOSIDES
     Indication: CONSTIPATION
     Dosage: 12 MG, DIVIDED DOSE FREQUENCY UNKNOWN
     Route: 048
     Dates: end: 201412

REACTIONS (7)
  - Cerebral atrophy [Unknown]
  - Restlessness [Unknown]
  - Speech disorder [Unknown]
  - Blood pressure decreased [Recovered/Resolved]
  - Abnormal behaviour [Unknown]
  - Cellulitis [Recovered/Resolved]
  - Depressed level of consciousness [Recovered/Resolved]

NARRATIVE: CASE EVENT DATE: 201411
